FAERS Safety Report 4320830-4 (Version None)
Quarter: 2004Q1

REPORT INFORMATION
  Report Type: 
  Country: None (occurrence: None)
  Receive Date: 20040322
  Receipt Date: 20040322
  Transmission Date: 20041129
  Serious: Yes (Life-Threatening, Other)
  Sender: FDA-Public Use
  Company Number: None

PATIENT
  Age: 42 Year
  Sex: Male
  Weight: 83.9154 kg

DRUGS (1)
  1. ZOLOFT [Suspect]
     Dosage: 1 100 MG DAY
     Dates: start: 19950101, end: 20040319

REACTIONS (2)
  - AGITATION [None]
  - SUICIDAL IDEATION [None]
